FAERS Safety Report 6087649-8 (Version None)
Quarter: 2009Q1

REPORT INFORMATION
  Report Type: 
  Country: None (occurrence: None)
  Receive Date: 20090223
  Receipt Date: 20090211
  Transmission Date: 20090719
  Serious: Yes (Other)
  Sender: FDA-Public Use
  Company Number: US-PFIZER INC-2009166071

PATIENT
  Sex: Female
  Weight: 80.739 kg

DRUGS (6)
  1. CHANTIX [Suspect]
     Indication: SMOKING CESSATION THERAPY
     Dosage: 1 MG, 2X/DAY
     Dates: start: 20090109, end: 20090204
  2. LISINOPRIL [Concomitant]
     Dosage: UNK
  3. PRAVACHOL [Concomitant]
     Dosage: UNK
  4. METFORMIN HYDROCHLORIDE [Concomitant]
     Dosage: UNK
  5. AMBIEN [Concomitant]
     Dosage: UNK
  6. BENADRYL [Concomitant]
     Dosage: UNK

REACTIONS (5)
  - DYSPHAGIA [None]
  - FUNGAL INFECTION [None]
  - RASH GENERALISED [None]
  - THROAT TIGHTNESS [None]
  - URINARY TRACT INFECTION [None]
